FAERS Safety Report 11510849 (Version 3)
Quarter: 2016Q3

REPORT INFORMATION
  Report Type: Spontaneous
  Country: US (occurrence: US)
  Receive Date: 20150915
  Receipt Date: 20160802
  Transmission Date: 20161109
  Serious: Yes (Hospitalization, Other)
  Sender: FDA-Public Use
  Company Number: US-JUBILANT CADISTA PHARMACEUTICALS-2015JUB00276

PATIENT
  Age: 22 Year
  Sex: Female
  Weight: 56 kg

DRUGS (10)
  1. FERROUS SULFATE. [Concomitant]
     Active Substance: FERROUS SULFATE
     Dosage: 325 MG, 1X/DAY
  2. MYCOPHENOLATE MOFETIL. [Suspect]
     Active Substance: MYCOPHENOLATE MOFETIL
     Indication: JUVENILE IDIOPATHIC ARTHRITIS
     Dosage: 500 MG, 2X/DAY
     Route: 048
     Dates: start: 201404, end: 20150817
  3. PLAQUENIL [Concomitant]
     Active Substance: HYDROXYCHLOROQUINE SULFATE
     Dosage: 200 MG, 1X/DAY
  4. IMURAN [Concomitant]
     Active Substance: AZATHIOPRINE
     Dosage: 50 MG, 1X/DAY
  5. PRENATAL VITAMINS [Concomitant]
     Active Substance: VITAMINS
     Dosage: UNK, 1X/DAY
  6. BACTROBAN OINTMENT 2% [Concomitant]
     Dosage: UNK
     Route: 061
  7. MYCOPHENOLATE MOFETIL. [Suspect]
     Active Substance: MYCOPHENOLATE MOFETIL
     Indication: DERMATOMYOSITIS
  8. PREDNISONE. [Concomitant]
     Active Substance: PREDNISONE
     Dosage: 5 MG, 1X/DAY
  9. CULTURELLE PROBIOTIC [Concomitant]
     Dosage: 1 CAPSULES, 3X/DAY
  10. OSCAL [Concomitant]
     Active Substance: CALCIUM CARBONATE
     Dosage: 1250 MG, 1X/DAY

REACTIONS (3)
  - Hospitalisation [Unknown]
  - Exposure during pregnancy [Unknown]
  - Off label use [Unknown]

NARRATIVE: CASE EVENT DATE: 201404
